FAERS Safety Report 7405040-6 (Version None)
Quarter: 2011Q2

REPORT INFORMATION
  Report Type: 
  Country: None (occurrence: None)
  Receive Date: 20110404
  Receipt Date: 20110324
  Transmission Date: 20111010
  Serious: Yes (Hospitalization)
  Sender: FDA-Public Use
  Company Number: 1000019527

PATIENT
  Age: 53 Year
  Sex: Female
  Weight: 48.99 kg

DRUGS (19)
  1. LIPITOR [Concomitant]
  2. PLAVIX [Concomitant]
  3. SOMATULINE DEPOT [Suspect]
     Indication: ACROMEGALY
     Dosage: 60 MG (1 IN 28 D), SUBCUTANEOUS
     Route: 058
     Dates: start: 20100520
  4. RANITIDINE [Concomitant]
  5. CALCIUM (CALCIUM) (CALCIUM) [Concomitant]
  6. NAMENDA [Suspect]
     Dosage: 5 MG (5 MG, 1 IN 1 D),ORAL, 30 MG (15 MG,2 IN 1 D),ORAL
     Route: 048
     Dates: start: 20100501
  7. WELCHOL [Concomitant]
  8. PREMPRO (CONJUGATED ESTROGENS, MEDROXYPROGESTERONE ACETATE)(CONJUGATED [Concomitant]
  9. MEGESTROL (MEGESTROL)(MEGESTROL) [Concomitant]
  10. BUPROPRION SR(BUPROPRION SR) (BUPROPRION SR) [Concomitant]
  11. MIRALAX (MACROGOL ) (MACROGOL) [Concomitant]
  12. VITAMIN D(VITAMIN D)(VITAMIN D) [Concomitant]
  13. MULTIVITAMIN (MULTIVITAMIN (NOS)) (MULTIVITAMIN (NOS)) [Concomitant]
  14. TOPAMAX (TOPIRAMATE) (TOPIRAMATE) [Concomitant]
  15. NEXIUM [Concomitant]
  16. TRAZODONE (TRAZODONE)(TRAZODONE) [Concomitant]
  17. LEXAPRO (ESCITALOPRAM OXALATE) (ESCITALOPRAM OXALATE) [Concomitant]
  18. LISINOPRIL [Concomitant]
  19. ASPIRIN [Concomitant]

REACTIONS (7)
  - ABDOMINAL PAIN UPPER [None]
  - FALL [None]
  - VERTIGO [None]
  - REGURGITATION [None]
  - BLOOD GLUCOSE INCREASED [None]
  - HAEMORRHAGE [None]
  - CONCUSSION [None]
